FAERS Safety Report 9939110 (Version 3)
Quarter: 2014Q1

REPORT INFORMATION
  Report Type: Report from Study
  Country: FR (occurrence: FR)
  Receive Date: 20140303
  Receipt Date: 20140307
  Transmission Date: 20141002
  Serious: Yes (Death, Other)
  Sender: FDA-Public Use
  Company Number: FR-ASTELLAS-2013EU010104

PATIENT
  Age: 60 Year
  Sex: Male
  Weight: 90 kg

DRUGS (4)
  1. ENZALUTAMIDE [Suspect]
     Indication: PROSTATE CANCER
     Dosage: 160 MG, UID/QD
     Route: 048
     Dates: start: 20130419, end: 20131024
  2. SOLUPRED                           /00016201/ [Concomitant]
     Indication: BONE PAIN
     Dosage: 20 MG, UID/QD
     Route: 048
     Dates: start: 20130115
  3. XGEVA [Concomitant]
     Indication: METASTASES TO BONE
     Dosage: 120 MG, MONTHLY
     Route: 058
     Dates: start: 20130115
  4. DECAPEPTYL                         /00486501/ [Concomitant]
     Indication: PROSTATE CANCER
     Dosage: 11.5 MG, OTHER
     Route: 058
     Dates: start: 20130325

REACTIONS (2)
  - Malignant neoplasm progression [Fatal]
  - Acetabulum fracture [Not Recovered/Not Resolved]
